FAERS Safety Report 10665199 (Version 2)
Quarter: 2014Q4

REPORT INFORMATION
  Report Type: Spontaneous
  Country: US (occurrence: US)
  Receive Date: 20141219
  Receipt Date: 20141219
  Transmission Date: 20150529
  Serious: No
  Sender: FDA-Public Use
  Company Number: US-PFIZER INC-2014172296

PATIENT
  Age: 73 Year
  Sex: Female
  Weight: 43.6 kg

DRUGS (13)
  1. SUTENT [Suspect]
     Active Substance: SUNITINIB MALATE
     Indication: CARCINOID TUMOUR OF THE SMALL BOWEL
     Dosage: 25 MG, DAILY (28 DAYS ON AND 14 OFF)
     Route: 048
     Dates: start: 20140530
  2. CREON [Concomitant]
     Active Substance: PANCRELIPASE AMYLASE\PANCRELIPASE LIPASE\PANCRELIPASE PROTEASE
     Dosage: UNK
  3. ZOLPIDEM TARTRATE. [Concomitant]
     Active Substance: ZOLPIDEM TARTRATE
     Dosage: UNK
  4. SUTENT [Suspect]
     Active Substance: SUNITINIB MALATE
     Dosage: 25 MG, CYCLIC (28 DAYS ON AND 14 DAYS OFF FOR ABOUT 6 MONTHS)
  5. FENOFIBRATE. [Concomitant]
     Active Substance: FENOFIBRATE
     Dosage: UNK
  6. AMYLASE/LIPASE/PROTEASE [Concomitant]
     Dosage: UNK
  7. BETAMETHASONE DIPROPIONATE. [Concomitant]
     Active Substance: BETAMETHASONE DIPROPIONATE
     Dosage: UNK
  8. METAMUCIL [Concomitant]
     Active Substance: PLANTAGO SEED
     Dosage: UNK
  9. LEVOTHYROXINE SODIUM. [Concomitant]
     Active Substance: LEVOTHYROXINE SODIUM
     Dosage: UNK
  10. DIFLORASONE DIACETATE. [Concomitant]
     Active Substance: DIFLORASONE DIACETATE
     Dosage: UNK
  11. VITAMIN D [Concomitant]
     Active Substance: CHOLECALCIFEROL
     Dosage: UNK
  12. OPIUM [Concomitant]
     Active Substance: OPIUM
     Dosage: UNK
  13. CALCIUM CITRATE + D [Concomitant]
     Dosage: UNK

REACTIONS (7)
  - Fatigue [Unknown]
  - Flushing [Unknown]
  - Skin reaction [Unknown]
  - Product use issue [Unknown]
  - Blood bilirubin increased [Unknown]
  - Dysgeusia [Unknown]
  - Oral pain [Unknown]
